FAERS Safety Report 24440758 (Version 2)
Quarter: 2024Q4

REPORT INFORMATION
  Report Type: Report from Study
  Country: CH (occurrence: CH)
  Receive Date: 20241016
  Receipt Date: 20241017
  Transmission Date: 20250115
  Serious: No
  Sender: ROCHE
  Company Number: CH-ROCHE-2906507

PATIENT
  Age: 1 Year
  Sex: Male
  Weight: 19.0 kg

DRUGS (12)
  1. EMICIZUMAB [Suspect]
     Active Substance: EMICIZUMAB
     Indication: Haemophilia A without inhibitors
     Route: 058
     Dates: start: 20210817, end: 20210907
  2. EMICIZUMAB [Suspect]
     Active Substance: EMICIZUMAB
     Route: 058
     Dates: start: 20210921
  3. OCTANATE [Concomitant]
     Active Substance: ANTIHEMOPHILIC FACTOR HUMAN
     Indication: Factor VIII deficiency
     Route: 042
     Dates: start: 20210426, end: 20210426
  4. OCTANATE [Concomitant]
     Active Substance: ANTIHEMOPHILIC FACTOR HUMAN
     Indication: Haemorrhage prophylaxis
     Route: 042
     Dates: start: 20210705, end: 20210705
  5. OCTANATE [Concomitant]
     Active Substance: ANTIHEMOPHILIC FACTOR HUMAN
     Route: 042
     Dates: start: 20210726, end: 20210729
  6. OCTANATE [Concomitant]
     Active Substance: ANTIHEMOPHILIC FACTOR HUMAN
     Route: 042
     Dates: start: 20210804, end: 20210804
  7. OCTANATE [Concomitant]
     Active Substance: ANTIHEMOPHILIC FACTOR HUMAN
     Route: 042
     Dates: start: 20210811, end: 20210811
  8. OCTANATE [Concomitant]
     Active Substance: ANTIHEMOPHILIC FACTOR HUMAN
     Route: 042
     Dates: start: 20210813, end: 20210813
  9. PRIORIX [Concomitant]
     Active Substance: MEASLES-MUMPS-RUBELLA VIRUS VACCINE
     Indication: Prophylaxis
     Route: 058
     Dates: start: 20210816, end: 20210816
  10. MALTOFER [Concomitant]
     Indication: Iron deficiency
     Route: 048
     Dates: start: 20210929, end: 20220504
  11. MALTOFER [Concomitant]
     Route: 048
     Dates: start: 20221125
  12. MAGNESIUM [Concomitant]
     Active Substance: MAGNESIUM
     Indication: Muscle spasms
     Route: 048
     Dates: start: 20230801, end: 20230831

REACTIONS (5)
  - Constipation [Not Recovered/Not Resolved]
  - Vomiting [Recovered/Resolved]
  - Upper respiratory tract infection [Recovered/Resolved]
  - Ear infection [Recovered/Resolved]
  - Otitis media [Recovered/Resolved]

NARRATIVE: CASE EVENT DATE: 20210820
